FAERS Safety Report 8329205-4 (Version None)
Quarter: 2012Q2

REPORT INFORMATION
  Report Type: 
  Country: None (occurrence: None)
  Receive Date: 20120502
  Receipt Date: 20110421
  Transmission Date: 20120825
  Serious: No
  Sender: FDA-Public Use
  Company Number: US-ASTRAZENECA-2011SE23633

PATIENT
  Sex: Female
  Weight: 68 kg

DRUGS (3)
  1. AMLODIPINE [Concomitant]
  2. LIDOCAINE [Concomitant]
  3. FASLODEX [Suspect]
     Indication: BREAST CANCER METASTATIC
     Route: 030
     Dates: start: 20100101

REACTIONS (4)
  - VOMITING [None]
  - DYSPHAGIA [None]
  - OESOPHAGEAL DISORDER [None]
  - SENSATION OF FOREIGN BODY [None]
